FAERS Safety Report 14756368 (Version 1)
Quarter: 2018Q2

REPORT INFORMATION
  Report Type: Spontaneous
  Country: US (occurrence: US)
  Receive Date: 20180413
  Receipt Date: 20180413
  Transmission Date: 20180711
  Serious: Yes (Hospitalization, Other)
  Sender: FDA-Public Use
  Company Number: US-GLAXOSMITHKLINE-US2018062493

PATIENT
  Age: 67 Year
  Sex: Female

DRUGS (8)
  1. HYDROCHLOROTHIAZIDE. [Concomitant]
     Active Substance: HYDROCHLOROTHIAZIDE
  2. METOPROLOL. [Concomitant]
     Active Substance: METOPROLOL
  3. LOSARTAN. [Concomitant]
     Active Substance: LOSARTAN
  4. PROAIR HFA [Concomitant]
     Active Substance: ALBUTEROL SULFATE
  5. LASIX [Concomitant]
     Active Substance: FUROSEMIDE
  6. ADVAIR DISKUS [Suspect]
     Active Substance: FLUTICASONE PROPIONATE\SALMETEROL XINAFOATE
     Indication: ASTHMA
     Dosage: 100/50UG, BID
     Route: 055
     Dates: start: 2017, end: 201711
  7. ADVAIR DISKUS [Suspect]
     Active Substance: FLUTICASONE PROPIONATE\SALMETEROL XINAFOATE
     Indication: DYSPNOEA
  8. ADVAIR DISKUS [Suspect]
     Active Substance: FLUTICASONE PROPIONATE\SALMETEROL XINAFOATE
     Indication: CHRONIC OBSTRUCTIVE PULMONARY DISEASE
     Dosage: 250/50UG, BID
     Route: 055
     Dates: start: 201711

REACTIONS (6)
  - Chronic obstructive pulmonary disease [Recovered/Resolved]
  - Drug effect incomplete [Unknown]
  - Dyspnoea [Unknown]
  - Underdose [Unknown]
  - Lung infection [Recovered/Resolved]
  - Drug effect decreased [Unknown]

NARRATIVE: CASE EVENT DATE: 201711
